FAERS Safety Report 26020627 (Version 1)
Quarter: 2025Q4

REPORT INFORMATION
  Report Type: Spontaneous
  Country: US (occurrence: None)
  Receive Date: 20251107
  Receipt Date: 20251107
  Transmission Date: 20260117
  Serious: Yes (Other)
  Sender: FDA-CTU
  Company Number: None

PATIENT
  Age: 58 Year
  Sex: Female

DRUGS (2)
  1. TABRECTA [Suspect]
     Active Substance: CAPMATINIB
     Dosage: 300 MG BID
  2. TAGRISSO [Suspect]
     Active Substance: OSIMERTINIB
     Dosage: QD

REACTIONS (6)
  - Peripheral swelling [None]
  - Syncope [None]
  - Dehydration [None]
  - Orthostatic hypotension [None]
  - Decreased appetite [None]
  - Weight increased [None]
